FAERS Safety Report 5399339-5 (Version None)
Quarter: 2007Q3

REPORT INFORMATION
  Report Type: 
  Country: None (occurrence: None)
  Receive Date: 20070727
  Receipt Date: 20070724
  Transmission Date: 20080115
  Serious: Yes (Death, Disabling, Other)
  Sender: FDA-Public Use
  Company Number: PHNU2007DE02627

PATIENT
  Sex: Female

DRUGS (9)
  1. AREDIA [Suspect]
     Indication: MULTIPLE MYELOMA
     Dosage: 90 MG, UNK
     Route: 042
     Dates: start: 20000701, end: 20010601
  2. ZOMETA [Suspect]
     Indication: MULTIPLE MYELOMA
     Dosage: 4 MG, UNK
     Route: 042
     Dates: start: 20010701
  3. ASPIRIN [Concomitant]
     Dosage: 100 MG, QD
     Route: 048
  4. FURO [Concomitant]
     Dosage: 500 MG, QD
     Route: 065
  5. METOPROLOL SUCCINATE [Concomitant]
     Dosage: 1 TABLET DAILY
  6. DEKRISTOL [Concomitant]
     Route: 065
  7. DIGITOXIN TAB [Concomitant]
     Route: 065
  8. VESDIL [Concomitant]
     Route: 065
  9. CLINDAMYCIN HCL [Concomitant]
     Route: 065

REACTIONS (10)
  - ABSCESS DRAINAGE [None]
  - ABSCESS JAW [None]
  - ACTINOMYCOSIS [None]
  - ANTIBIOTIC PROPHYLAXIS [None]
  - DEATH [None]
  - JAW OPERATION [None]
  - OSTEITIS [None]
  - OSTEONECROSIS [None]
  - PERIODONTITIS [None]
  - TOOTH EXTRACTION [None]
